FAERS Safety Report 22349267 (Version 1)
Quarter: 2023Q2

REPORT INFORMATION
  Report Type: Spontaneous
  Country: FR (occurrence: FR)
  Receive Date: 20230522
  Receipt Date: 20230522
  Transmission Date: 20230721
  Serious: Yes (Other)
  Sender: FDA-Public Use
  Company Number: None

PATIENT
  Age: 67 Year
  Sex: Female
  Weight: 98 kg

DRUGS (16)
  1. CARBOPLATIN [Suspect]
     Active Substance: CARBOPLATIN
     Indication: Triple negative breast cancer
     Dates: start: 20230201
  2. PACLITAXEL [Suspect]
     Active Substance: PACLITAXEL
     Indication: Triple negative breast cancer
     Dosage: 80 MG/M2 ON D1/D8/D15
     Dates: start: 20230201
  3. PEMBROLIZUMAB [Suspect]
     Active Substance: PEMBROLIZUMAB
     Indication: Triple negative breast cancer
     Dates: start: 20230201
  4. ABILIFY [Concomitant]
     Active Substance: ARIPIPRAZOLE
  5. LYRICA [Concomitant]
     Active Substance: PREGABALIN
  6. TRANXENE [Concomitant]
     Active Substance: CLORAZEPATE DIPOTASSIUM
  7. MIRTAZAPINE [Concomitant]
     Active Substance: MIRTAZAPINE
  8. VENTOLIN [Concomitant]
     Active Substance: ALBUTEROL SULFATE
  9. LEVOTHYROXINE [Concomitant]
     Active Substance: LEVOTHYROXINE
  10. TRIMEPRAZINE [Concomitant]
     Active Substance: TRIMEPRAZINE
  11. ATORVASTATIN [Concomitant]
     Active Substance: ATORVASTATIN
  12. ZOLPIDEM [Concomitant]
     Active Substance: ZOLPIDEM TARTRATE
  13. METFORMIN PAMOATE [Concomitant]
     Active Substance: METFORMIN PAMOATE
  14. LORMETAZEPAM [Concomitant]
     Active Substance: LORMETAZEPAM
  15. GLYCOPYRROLATE\INDACATEROL MALEATE [Concomitant]
     Active Substance: GLYCOPYRROLATE\INDACATEROL MALEATE
  16. NOVORAPID [Concomitant]
     Active Substance: INSULIN ASPART

REACTIONS (2)
  - Arthralgia [Recovered/Resolved]
  - Treatment delayed [Recovered/Resolved]

NARRATIVE: CASE EVENT DATE: 20230310
